FAERS Safety Report 5239464-2 (Version None)
Quarter: 2007Q1

REPORT INFORMATION
  Report Type: 
  Country: None (occurrence: None)
  Receive Date: 20070216
  Receipt Date: 20070207
  Transmission Date: 20070707
  Serious: Yes (Death, Life-Threatening, Hospitalization)
  Sender: FDA-Public Use
  Company Number: SE-JNJFOC-20070202227

PATIENT
  Age: 76 Year
  Sex: Female

DRUGS (8)
  1. REMICADE [Suspect]
     Indication: TEMPORAL ARTERITIS
     Route: 042
  2. OMEPRAZOLE [Concomitant]
     Route: 065
  3. METHOTREXATE [Concomitant]
     Route: 065
  4. FOLACIN [Concomitant]
     Route: 065
  5. PANODIL [Concomitant]
     Route: 065
  6. PREDNISOLONE [Concomitant]
     Route: 065
  7. CALCICHEW-D3 [Concomitant]
     Route: 065
  8. OPTINATE COMBI D [Concomitant]
     Dosage: FILM COATED TABLETS AND EFFERVESCENT GRANULES
     Route: 065

REACTIONS (4)
  - INTERSTITIAL LUNG DISEASE [None]
  - RENAL FAILURE [None]
  - RESPIRATORY FAILURE [None]
  - SEPSIS [None]
